FAERS Safety Report 19484033 (Version 2)
Quarter: 2021Q3

REPORT INFORMATION
  Report Type: Spontaneous
  Country: LB (occurrence: LB)
  Receive Date: 20210701
  Receipt Date: 20210707
  Transmission Date: 20211014
  Serious: Yes (Hospitalization, Other)
  Sender: FDA-Public Use
  Company Number: LB-PFIZER INC-2021807853

PATIENT
  Age: 75 Year
  Sex: Female
  Weight: 74 kg

DRUGS (5)
  1. BRAFTOVI [Suspect]
     Active Substance: ENCORAFENIB
     Indication: COLON CANCER
     Dosage: 300MG/DAY ORALLY
     Route: 048
     Dates: start: 20210318
  2. BRAFTOVI [Suspect]
     Active Substance: ENCORAFENIB
     Dosage: 150 MG DAILY
     Route: 065
     Dates: end: 20210404
  3. CETUXIMAB. [Suspect]
     Active Substance: CETUXIMAB
     Indication: COLON CANCER
     Dosage: UNK
     Route: 065
     Dates: start: 20210318
  4. BRAFTOVI [Suspect]
     Active Substance: ENCORAFENIB
     Dosage: 75 MG DAILY
     Route: 065
     Dates: start: 202104
  5. CETUXIMAB. [Suspect]
     Active Substance: CETUXIMAB
     Indication: BRAF GENE MUTATION

REACTIONS (8)
  - Vomiting [Recovered/Resolved]
  - Pancreatitis [Recovered/Resolved]
  - Decreased appetite [Not Recovered/Not Resolved]
  - Nausea [Recovered/Resolved]
  - Pyrexia [Recovered/Resolved]
  - Fatigue [Not Recovered/Not Resolved]
  - Blood alkaline phosphatase increased [Not Recovered/Not Resolved]
  - Lipase increased [Unknown]

NARRATIVE: CASE EVENT DATE: 20210322
